FAERS Safety Report 15555738 (Version 5)
Quarter: 2018Q4

REPORT INFORMATION
  Report Type: Report from Study
  Country: CA (occurrence: CA)
  Receive Date: 20181026
  Receipt Date: 20181126
  Transmission Date: 20190205
  Serious: Yes (Other)
  Sender: FDA-Public Use
  Company Number: CA-JNJFOC-20181031084

PATIENT
  Age: 12 Year
  Sex: Male
  Weight: 52 kg

DRUGS (3)
  1. REMICADE [Suspect]
     Active Substance: INFLIXIMAB
     Indication: COLITIS ULCERATIVE
     Route: 042
     Dates: start: 20181019
  2. REMICADE [Suspect]
     Active Substance: INFLIXIMAB
     Indication: COLITIS ULCERATIVE
     Dosage: STRENGTH = 100 MG, DOSE ALSO REPORTED AS 10 MG/KG.
     Route: 042
     Dates: start: 20180705, end: 20181019
  3. REMICADE [Suspect]
     Active Substance: INFLIXIMAB
     Indication: COLITIS ULCERATIVE
     Route: 042
     Dates: start: 2018

REACTIONS (10)
  - Colitis ulcerative [Not Recovered/Not Resolved]
  - Off label use [Unknown]
  - Cough [Recovered/Resolved]
  - Infusion related reaction [Recovered/Resolved]
  - Drug specific antibody [Unknown]
  - Chest discomfort [Recovered/Resolved]
  - Flushing [Recovered/Resolved]
  - Incorrect dose administered [Unknown]
  - Drug level decreased [Unknown]
  - Product use issue [Unknown]

NARRATIVE: CASE EVENT DATE: 2018
